FAERS Safety Report 4702975-X (Version None)
Quarter: 2005Q2

REPORT INFORMATION
  Report Type: 
  Country: None (occurrence: None)
  Receive Date: 20050629
  Receipt Date: 20050623
  Transmission Date: 20051028
  Serious: Yes (Other)
  Sender: FDA-Public Use
  Company Number: PHBS2005BR09179

PATIENT
  Sex: Male

DRUGS (3)
  1. METFORMIN [Concomitant]
  2. ANTIHYPERTENSIVES [Concomitant]
  3. STARLIX [Suspect]
     Route: 048

REACTIONS (1)
  - HEPATIC STEATOSIS [None]
